FAERS Safety Report 16101610 (Version 2)
Quarter: 2019Q1

REPORT INFORMATION
  Report Type: Report from Study
  Country: US (occurrence: US)
  Receive Date: 20190321
  Receipt Date: 20190329
  Transmission Date: 20190418
  Serious: Yes (Hospitalization)
  Sender: FDA-Public Use
  Company Number: US-EISAI MEDICAL RESEARCH-EC-2019-053707

PATIENT
  Age: 65 Year
  Sex: Female
  Weight: 82.1 kg

DRUGS (22)
  1. TUMS [Concomitant]
     Active Substance: CALCIUM CARBONATE
  2. SODIUM BICARBONATE. [Concomitant]
     Active Substance: SODIUM BICARBONATE
  3. NEUROTIN [Concomitant]
     Active Substance: GABAPENTIN
  4. ATIVAN [Concomitant]
     Active Substance: LORAZEPAM
  5. SIMETHICONE (DIMETHICONE) [Concomitant]
     Active Substance: DIMETHICONE
  6. TYLENOL [Concomitant]
     Active Substance: ACETAMINOPHEN
  7. METFORMIN [Concomitant]
     Active Substance: METFORMIN HYDROCHLORIDE
  8. ZOFRAN ODT [Concomitant]
     Active Substance: ONDANSETRON HYDROCHLORIDE
  9. ROXICODONE [Concomitant]
     Active Substance: OXYCODONE HYDROCHLORIDE
  10. POLYETHYLENE GLYCOL [Concomitant]
     Active Substance: POLYETHYLENE GLYCOLS
  11. PSYLLIUM POWD [Concomitant]
  12. ERIBULIN [Suspect]
     Active Substance: ERIBULIN
     Indication: LIPOSARCOMA
     Route: 041
     Dates: start: 20181112, end: 20190122
  13. MYCOSTATIN [Concomitant]
     Active Substance: NYSTATIN
  14. LIPITOR [Concomitant]
     Active Substance: ATORVASTATIN CALCIUM
  15. CREON [Concomitant]
     Active Substance: PANCRELIPASE AMYLASE\PANCRELIPASE LIPASE\PANCRELIPASE PROTEASE
  16. REGLAN [Concomitant]
     Active Substance: METOCLOPRAMIDE HYDROCHLORIDE
  17. SYNTHROID [Concomitant]
     Active Substance: LEVOTHYROXINE SODIUM
  18. AMLODIPINE [Concomitant]
     Active Substance: AMLODIPINE BESYLATE
  19. CELEXA [Concomitant]
     Active Substance: CITALOPRAM HYDROBROMIDE
  20. DOCUSATE SODIUM. [Concomitant]
     Active Substance: DOCUSATE SODIUM
  21. PRILOSEC [Concomitant]
     Active Substance: OMEPRAZOLE MAGNESIUM
  22. HUMALOG [Concomitant]
     Active Substance: INSULIN LISPRO

REACTIONS (2)
  - Abdominal infection [Recovering/Resolving]
  - Gastrointestinal anastomotic leak [Recovering/Resolving]

NARRATIVE: CASE EVENT DATE: 20190314
